FAERS Safety Report 8966230 (Version 2)
Quarter: 2013Q2

REPORT INFORMATION
  Report Type: Spontaneous
  Country: US (occurrence: US)
  Receive Date: 20121217
  Receipt Date: 20130410
  Transmission Date: 20140414
  Serious: No
  Sender: FDA-Public Use
  Company Number: US-009507513-1212USA004792

PATIENT
  Sex: Male

DRUGS (2)
  1. JANUMET [Suspect]
     Indication: DIABETES MELLITUS
     Dosage: 50/1000 MG, UNKNOWN FREQUENCY
     Route: 048
  2. K-DUR [Suspect]
     Route: 048

REACTIONS (1)
  - Dysphagia [Not Recovered/Not Resolved]
